FAERS Safety Report 11936751 (Version 3)
Quarter: 2016Q2

REPORT INFORMATION
  Report Type: Report from Study
  Country: FR (occurrence: FR)
  Receive Date: 20160121
  Receipt Date: 20160408
  Transmission Date: 20160815
  Serious: Yes (Hospitalization)
  Sender: FDA-Public Use
  Company Number: FR-SEATTLE GENETICS-2016SGN00061

PATIENT

DRUGS (3)
  1. CARBOPLATINE [Suspect]
     Active Substance: CARBOPLATIN
     Indication: PERIPHERAL T-CELL LYMPHOMA UNSPECIFIED
     Dosage: 580 MG, UNK
     Route: 042
     Dates: start: 20151105
  2. CYTARABINE. [Suspect]
     Active Substance: CYTARABINE
     Indication: PERIPHERAL T-CELL LYMPHOMA UNSPECIFIED
     Dosage: 3600 MG, UNK
     Route: 042
     Dates: start: 20151105
  3. BRENTUXIMAB VEDOTIN [Suspect]
     Active Substance: BRENTUXIMAB VEDOTIN
     Indication: PERIPHERAL T-CELL LYMPHOMA UNSPECIFIED
     Dosage: 120 MG, UNK
     Route: 042
     Dates: start: 20151104, end: 20160208

REACTIONS (10)
  - Aplasia [Recovered/Resolved]
  - Neutropenia [Recovered/Resolved]
  - Neuropathy peripheral [Not Recovered/Not Resolved]
  - Anaemia [Recovered/Resolved]
  - Fatigue [Not Recovered/Not Resolved]
  - Infection [Recovered/Resolved]
  - Stomatitis [Recovering/Resolving]
  - Pyrexia [Recovered/Resolved]
  - Febrile neutropenia [Recovered/Resolved]
  - Thrombocytopenia [Not Recovered/Not Resolved]

NARRATIVE: CASE EVENT DATE: 2015
